FAERS Safety Report 8530863-X (Version None)
Quarter: 2012Q3

REPORT INFORMATION
  Report Type: 
  Country: None (occurrence: None)
  Receive Date: 20120710
  Receipt Date: 20120625
  Transmission Date: 20120928
  Serious: Yes (Hospitalization)
  Sender: FDA-Public Use
  Company Number: 2012AP001970

PATIENT
  Sex: Female

DRUGS (9)
  1. LEVOFLOXACIN [Suspect]
     Indication: ANTIBIOTIC PROPHYLAXIS
     Dosage: 250 MO;QD;
  2. VANCOMYCIN [Suspect]
     Indication: CLOSTRIDIAL INFECTION
     Dosage: 125 MG;QID;
  3. LINEZOLID [Suspect]
     Indication: ENTEROCOCCAL INFECTION
  4. PENTAMIDINE ISETHIONATE [Concomitant]
  5. ACYCLOVIR [Suspect]
     Indication: PROPHYLAXIS
     Dosage: 400 MQ;BID
  6. METRONIDAZOLE [Suspect]
     Indication: CLOSTRIDIAL INFECTION
     Dosage: 500 MG; Q8H; IV
     Route: 042
  7. PREDNISONE [Suspect]
     Indication: CHRONIC GRAFT VERSUS HOST DISEASE
     Dosage: 10 MG;Q
  8. COTRIM [Suspect]
     Indication: ANTIFUNGAL PROPHYLAXIS
     Dosage: COTRIMOXAZOLE
  9. FLUCONAZOLE [Suspect]
     Indication: PROPHYLAXIS
     Dosage: 100 MG;QD;

REACTIONS (11)
  - PNEUMOCYSTIS JIROVECI INFECTION [None]
  - RESPIRATORY MUSCLE WEAKNESS [None]
  - URINARY TRACT INFECTION ENTEROCOCCAL [None]
  - SEPTIC SHOCK [None]
  - CONFUSIONAL STATE [None]
  - TACHYCARDIA [None]
  - HYPERCAPNIA [None]
  - MENTAL STATUS CHANGES [None]
  - DISEASE RECURRENCE [None]
  - RESPIRATORY FAILURE [None]
  - CLOSTRIDIAL INFECTION [None]
